FAERS Safety Report 15688707 (Version 1)
Quarter: 2018Q4

REPORT INFORMATION
  Report Type: Spontaneous
  Country: RU (occurrence: RU)
  Receive Date: 20181205
  Receipt Date: 20181205
  Transmission Date: 20190205
  Serious: Yes (Other)
  Sender: FDA-Public Use
  Company Number: RU-IPCA LABORATORIES LIMITED-IPC-2018-RU-002393

PATIENT

DRUGS (11)
  1. AMLODIPINE [Suspect]
     Active Substance: AMLODIPINE BESYLATE
     Indication: ANGINA PECTORIS
     Dosage: 5 MG, UNK
     Route: 065
  2. BISOPROLOL [Interacting]
     Active Substance: BISOPROLOL
     Indication: ANGINA PECTORIS
     Dosage: 10 MG, UNK
     Route: 065
     Dates: start: 2017
  3. WARFARIN SODIUM TABLETS USP  2.5MG [Suspect]
     Active Substance: WARFARIN SODIUM
     Indication: ANGINA PECTORIS
     Dosage: 1 DF, QD
     Route: 065
     Dates: start: 2017
  4. ETHYL METHYL HYDROXYPYRIDINE SUCCINATE [Concomitant]
     Indication: ANGINA PECTORIS
     Dosage: 250 MG, QD
     Route: 065
     Dates: start: 2017
  5. ROSUVASTATIN. [Interacting]
     Active Substance: ROSUVASTATIN
     Indication: ANGINA PECTORIS
     Dosage: 10 MG, UNK
     Route: 065
     Dates: start: 20171225
  6. TORASEMIDE [Interacting]
     Active Substance: TORSEMIDE
     Indication: ANGINA PECTORIS
     Dosage: UNK
     Route: 065
     Dates: start: 2017
  7. AMIODARONE [Interacting]
     Active Substance: AMIODARONE
     Indication: CARDIAC FAILURE
     Dosage: 200 MG, UNK
     Route: 065
     Dates: start: 2017
  8. PENTAERYTHRITOL TETRANITRATE [Concomitant]
     Active Substance: PENTAERYTHRITOL TETRANITRATE
     Indication: ANGINA PECTORIS
     Dosage: 10 MG, UNK
     Route: 065
  9. CLONAZEPAM. [Interacting]
     Active Substance: CLONAZEPAM
     Indication: INSOMNIA
     Dosage: 2 MG, UNK
     Route: 065
     Dates: start: 2017
  10. MOXONIDINE [Interacting]
     Active Substance: MOXONIDINE
     Indication: ANGINA PECTORIS
     Dosage: 0.2 MG, UNK
     Route: 065
     Dates: start: 2017
  11. PERINDOPRIL [Interacting]
     Active Substance: PERINDOPRIL
     Indication: ANGINA PECTORIS
     Dosage: 5 MG, UNK
     Route: 065

REACTIONS (4)
  - Drug interaction [Unknown]
  - International normalised ratio increased [Recovered/Resolved]
  - Purpura [Recovered/Resolved]
  - Haemorrhage [Recovered/Resolved]

NARRATIVE: CASE EVENT DATE: 20180124
